FAERS Safety Report 4869294-2 (Version None)
Quarter: 2005Q4

REPORT INFORMATION
  Report Type: 
  Country: None (occurrence: None)
  Receive Date: 20051223
  Receipt Date: 20020822
  Transmission Date: 20060501
  Serious: Yes (Death, Life-Threatening, Hospitalization)
  Sender: FDA-Public Use
  Company Number: HQ1366325SEP2000

PATIENT
  Age: 67 Year
  Sex: Female

DRUGS (16)
  1. GEMTUZUMAB OZOGAMICIN [Suspect]
     Indication: ACUTE MYELOID LEUKAEMIA
     Dosage: 6 M G/M^1 X PER 1 DAY INTRAVENOUS
     Route: 042
     Dates: start: 20000828, end: 20000828
  2. GEMTUZUMAB OZOGAMICIN [Suspect]
     Indication: ACUTE MYELOID LEUKAEMIA
     Dosage: 6 M G/M^1 X PER 1 DAY INTRAVENOUS
     Route: 042
     Dates: start: 20000912, end: 20000912
  3. CYTARABINE [Suspect]
     Indication: ACUTE MYELOID LEUKAEMIA
     Dosage: 100 MG/M(2) / DAY (980 MG TOTAL DOSE) ADMINISTERED INTRAVENOUS
     Route: 042
  4. PARACETAMOL (PARACETAMOL) [Concomitant]
  5. PROMETHAZINE HYDROCHLORIDE TAB [Concomitant]
  6. ALLOPURINOL [Concomitant]
  7. FUROSEMIDE [Concomitant]
  8. HYDROCORTISONE [Concomitant]
  9. ESTRADIOL [Concomitant]
  10. MEDROXYPROGESTERONE [Concomitant]
  11. METOCLOPRAMIDE [Concomitant]
  12. LOPERAMIDE HCL [Concomitant]
  13. VELACICLOVIR (VELACICLOVIR) [Concomitant]
  14. MEROPENEM (MEROPENEM) [Concomitant]
  15. NYSTATIN [Concomitant]
  16. AMPHOTERICIN B [Concomitant]

REACTIONS (10)
  - BUNDLE BRANCH BLOCK [None]
  - CARDIAC FAILURE CONGESTIVE [None]
  - CHEST PAIN [None]
  - DIARRHOEA [None]
  - FEBRILE NEUTROPENIA [None]
  - FLUID RETENTION [None]
  - GENERAL PHYSICAL HEALTH DETERIORATION [None]
  - GINGIVITIS [None]
  - PANCYTOPENIA [None]
  - STOMATITIS [None]
